FAERS Safety Report 5150399-6 (Version None)
Quarter: 2006Q4

REPORT INFORMATION
  Report Type: 
  Country: None (occurrence: None)
  Receive Date: 20061108
  Receipt Date: 20061025
  Transmission Date: 20070319
  Serious: Yes (Other)
  Sender: FDA-Public Use
  Company Number: 2006131301

PATIENT
  Age: 50 Year
  Sex: Female

DRUGS (3)
  1. AROMASIN [Suspect]
     Indication: BREAST CANCER RECURRENT
     Dosage: 25 MG (1 IN 1 D), ORAL
     Route: 048
     Dates: start: 20060101
  2. FEMARA [Concomitant]
  3. ZOLADEX [Concomitant]

REACTIONS (2)
  - FOCAL NODULAR HYPERPLASIA [None]
  - LYMPHOEDEMA [None]
